FAERS Safety Report 20168670 (Version 1)
Quarter: 2021Q4

REPORT INFORMATION
  Report Type: Spontaneous
  Country: US (occurrence: US)
  Receive Date: 20211210
  Receipt Date: 20211210
  Transmission Date: 20220303
  Serious: No
  Sender: FDA-Public Use
  Company Number: US-TEVA-2021-US-1978882

PATIENT
  Sex: Female

DRUGS (4)
  1. ERYTHROMYCIN [Suspect]
     Active Substance: ERYTHROMYCIN
     Route: 065
     Dates: start: 202107
  2. METHYLPREDNISOLONE [Suspect]
     Active Substance: METHYLPREDNISOLONE
     Route: 065
  3. Garlic capsules [Concomitant]
     Route: 065
  4. DIMETHYL SULFONE [Concomitant]
     Active Substance: DIMETHYL SULFONE
     Route: 065

REACTIONS (2)
  - Inflammation [Recovering/Resolving]
  - Skin warm [Unknown]

NARRATIVE: CASE EVENT DATE: 20210901
